FAERS Safety Report 24106816 (Version 1)
Quarter: 2024Q3

REPORT INFORMATION
  Report Type: Spontaneous
  Country: JP (occurrence: JP)
  Receive Date: 20240717
  Receipt Date: 20240717
  Transmission Date: 20241016
  Serious: Yes (Disabling)
  Sender: PFIZER
  Company Number: JP-PFIZER INC-PV202400093461

PATIENT
  Age: 63 Year
  Sex: Male

DRUGS (1)
  1. SOLU-MEDROL [Suspect]
     Active Substance: METHYLPREDNISOLONE SODIUM SUCCINATE
     Dosage: UNK
     Dates: start: 200703, end: 200703

REACTIONS (2)
  - Motor dysfunction [Unknown]
  - Osteonecrosis [Unknown]
